FAERS Safety Report 11863382 (Version 1)
Quarter: 2015Q4

REPORT INFORMATION
  Report Type: Spontaneous
  Country: MA (occurrence: MA)
  Receive Date: 20151223
  Receipt Date: 20151223
  Transmission Date: 20160305
  Serious: Yes (Other)
  Sender: FDA-Public Use
  Company Number: MA-WATSON-2015-14367

PATIENT
  Age: 70 Year
  Sex: Female

DRUGS (2)
  1. RIFAMPICIN (UNKNOWN) [Suspect]
     Active Substance: RIFAMPIN
     Indication: PULMONARY TUBERCULOSIS
     Dosage: 8 MG/KG, DAILY
     Route: 065
  2. ISONIAZID. [Suspect]
     Active Substance: ISONIAZID
     Indication: PULMONARY TUBERCULOSIS
     Dosage: 4 MG/KG, DAILY
     Route: 065

REACTIONS (2)
  - Hypothermia [Recovered/Resolved]
  - Vomiting [Recovered/Resolved]
